FAERS Safety Report 10812081 (Version 1)
Quarter: 2015Q1

REPORT INFORMATION
  Report Type: Spontaneous
  Country: US (occurrence: None)
  Receive Date: 20150212
  Receipt Date: 20150212
  Transmission Date: 20150721
  Serious: Yes (Life-Threatening, Disabling, Other)
  Sender: FDA-Public Use
  Company Number: None

PATIENT
  Sex: Female
  Weight: 60.78 kg

DRUGS (1)
  1. GEODON [Suspect]
     Active Substance: ZIPRASIDONE HYDROCHLORIDE\ZIPRASIDONE MESYLATE
     Indication: PRODUCT USED FOR UNKNOWN INDICATION
     Dosage: 2 PILLS
     Route: 048
     Dates: start: 20050105, end: 20100212

REACTIONS (6)
  - Hallucination, auditory [None]
  - Lethargy [None]
  - Skin exfoliation [None]
  - Memory impairment [None]
  - Psychiatric symptom [None]
  - Disturbance in attention [None]
